FAERS Safety Report 7444921-4 (Version None)
Quarter: 2011Q2

REPORT INFORMATION
  Report Type: 
  Country: None (occurrence: None)
  Receive Date: 20110429
  Receipt Date: 20110418
  Transmission Date: 20111010
  Serious: Yes (Hospitalization)
  Sender: FDA-Public Use
  Company Number: PHHY2011FR19905

PATIENT
  Sex: Female
  Weight: 76 kg

DRUGS (8)
  1. DILTIAZEM [Concomitant]
  2. VITAMIN C [Concomitant]
  3. RED BLOOD CELLS, CONCENTRATED [Concomitant]
  4. LEVOTHYROX [Concomitant]
     Indication: HYPOTHYROIDISM
     Dosage: 62.5 MG, UNK
     Dates: start: 20091001
  5. EVEROLIMUS [Suspect]
     Dosage: 5 MG, UNK
  6. HYPERIUM [Concomitant]
     Dosage: 2 MG, UNK
  7. EVEROLIMUS [Suspect]
     Indication: RENAL CANCER METASTATIC
     Dosage: 10 MG, UNK
     Dates: start: 20101123
  8. ARANESP [Concomitant]

REACTIONS (2)
  - HYPOMAGNESAEMIA [None]
  - ANAEMIA [None]
